FAERS Safety Report 21341524 (Version 2)
Quarter: 2022Q3

REPORT INFORMATION
  Report Type: Spontaneous
  Country: US (occurrence: US)
  Receive Date: 20220916
  Receipt Date: 20220926
  Transmission Date: 20221027
  Serious: Yes (Hospitalization, Other)
  Sender: FDA-Public Use
  Company Number: US-BRISTOL-MYERS SQUIBB COMPANY-2022-106749

PATIENT
  Age: 78 Year
  Sex: Male

DRUGS (3)
  1. REVLIMID [Suspect]
     Active Substance: LENALIDOMIDE
     Indication: Plasma cell myeloma
     Route: 048
     Dates: start: 200707
  2. REVLIMID [Suspect]
     Active Substance: LENALIDOMIDE
     Route: 048
     Dates: start: 20090408
  3. REVLIMID [Suspect]
     Active Substance: LENALIDOMIDE
     Route: 065

REACTIONS (5)
  - Oropharyngeal pain [Unknown]
  - Cough [Unknown]
  - Illness [Unknown]
  - Leukopenia [Unknown]
  - Respiratory tract infection [Unknown]
